FAERS Safety Report 9035840 (Version 1)
Quarter: 2013Q1

REPORT INFORMATION
  Report Type: Report from Study
  Country: US (occurrence: US)
  Receive Date: 20130129
  Receipt Date: 20130129
  Transmission Date: 20140127
  Serious: No
  Sender: FDA-Public Use
  Company Number: US-ABBOTT-12P-163-0927829-00

PATIENT
  Sex: Male
  Weight: 118.04 kg

DRUGS (19)
  1. HUMIRA 40 MG/0.8 ML PEN [Suspect]
     Indication: PSORIASIS
     Route: 058
     Dates: start: 2005, end: 201011
  2. HUMIRA 40 MG/0.8 ML PEN [Suspect]
     Indication: PSORIATIC ARTHROPATHY
     Dates: start: 201105
  3. HUMIRA 40 MG/0.8 ML PEN [Suspect]
     Indication: CROHN^S DISEASE
  4. ASPIRIN [Concomitant]
     Indication: PROPHYLAXIS
  5. ATORVASTATIN [Concomitant]
     Indication: PRODUCT USED FOR UNKNOWN INDICATION
  6. UNNAMED STOOL SOFTENER [Concomitant]
     Indication: CONSTIPATION
  7. FOLIC ACID [Concomitant]
     Indication: PRODUCT USED FOR UNKNOWN INDICATION
  8. GLIPIZIDE [Concomitant]
     Indication: TYPE 2 DIABETES MELLITUS
  9. LIALDA [Concomitant]
     Indication: CROHN^S DISEASE
  10. LISINOPRIL [Concomitant]
     Indication: HYPERTENSION
  11. LYRICA [Concomitant]
     Indication: NEUROPATHY PERIPHERAL
  12. MAGNESIUM [Concomitant]
     Indication: BLOOD MAGNESIUM DECREASED
  13. MELOXICAM [Concomitant]
     Indication: PSORIATIC ARTHROPATHY
  14. METOPROLOL [Concomitant]
     Indication: HYPERTENSION
  15. NIASPAN [Concomitant]
     Indication: PRODUCT USED FOR UNKNOWN INDICATION
  16. PANTOPRAZOLE [Concomitant]
     Indication: GASTROOESOPHAGEAL REFLUX DISEASE
  17. SEROQUEL XR [Concomitant]
     Indication: NERVOUSNESS
  18. TEMAZEPAM [Concomitant]
     Indication: SLEEP DISORDER THERAPY
  19. UNNAMED MEDICATION [Concomitant]
     Indication: HYPERTENSION

REACTIONS (6)
  - Basal cell carcinoma [Recovered/Resolved]
  - Basal cell carcinoma [Recovered/Resolved]
  - Basal cell carcinoma [Recovering/Resolving]
  - Headache [Not Recovered/Not Resolved]
  - Blood glucose increased [Unknown]
  - Skin neoplasm bleeding [Recovered/Resolved]
